FAERS Safety Report 21898611 (Version 1)
Quarter: 2023Q1

REPORT INFORMATION
  Report Type: Spontaneous
  Country: FR (occurrence: FR)
  Receive Date: 20230123
  Receipt Date: 20230123
  Transmission Date: 20230417
  Serious: Yes (Hospitalization, Disabling, Other)
  Sender: FDA-Public Use
  Company Number: FR-BAYER-2022P015448

PATIENT
  Age: 23 Year
  Sex: Male

DRUGS (3)
  1. CIPROFLOXACIN [Suspect]
     Active Substance: CIPROFLOXACIN
     Indication: Infective chondritis
     Dosage: 1 DF, BID
     Route: 048
     Dates: start: 20070612, end: 200706
  2. CIPROFLOXACIN [Suspect]
     Active Substance: CIPROFLOXACIN
     Indication: Pseudomonas infection
     Dosage: UNK
     Dates: start: 20070707, end: 200708
  3. AZACTAM [Concomitant]
     Active Substance: AZTREONAM
     Dosage: 2 G, BID
     Route: 048
     Dates: start: 20070612, end: 20070614

REACTIONS (10)
  - Ear infection [None]
  - Ear inflammation [None]
  - Dysaesthesia [None]
  - Fibromyalgia [None]
  - Tendon pain [None]
  - Paraesthesia [None]
  - Arthritis [None]
  - Depression [None]
  - Nosocomial infection [None]
  - Myopia [None]

NARRATIVE: CASE EVENT DATE: 20070101
